FAERS Safety Report 24966301 (Version 1)
Quarter: 2025Q1

REPORT INFORMATION
  Report Type: Spontaneous
  Country: JP (occurrence: JP)
  Receive Date: 20250213
  Receipt Date: 20250213
  Transmission Date: 20250409
  Serious: Yes (Hospitalization, Other)
  Sender: SANDOZ
  Company Number: JP-002147023-NVSJ2025JP001978

PATIENT
  Sex: Male

DRUGS (2)
  1. EXELON PATCH [Suspect]
     Active Substance: RIVASTIGMINE
     Indication: Dementia
     Dosage: 18MG?PATCH10(CM2),QD, FOR ABOUT 3 YEARS THIS YEAR.
     Route: 062
  2. EXELON PATCH [Suspect]
     Active Substance: RIVASTIGMINE
     Dosage: 18MG?PATCH10(CM2), BID
     Route: 062

REACTIONS (4)
  - Cholangitis acute [Unknown]
  - Decreased appetite [Unknown]
  - Accidental overdose [Unknown]
  - Product administration error [Unknown]

NARRATIVE: CASE EVENT DATE: 20250204
